FAERS Safety Report 6969130-4 (Version None)
Quarter: 2010Q3

REPORT INFORMATION
  Report Type: 
  Country: None (occurrence: None)
  Receive Date: 20100907
  Receipt Date: 20100827
  Transmission Date: 20110219
  Serious: Yes (Other)
  Sender: FDA-Public Use
  Company Number: GXKR2010GB09825

PATIENT
  Age: 30 Year
  Sex: Female

DRUGS (5)
  1. VANCOMYCIN (NGX) [Suspect]
     Dosage: UNK
     Dates: start: 20100816
  2. MEROPENEM TRIHYDRATE [Suspect]
     Dosage: UNK
     Route: 065
     Dates: start: 20100816
  3. GENTAMICIN [Concomitant]
  4. NITROFURANTOIN [Concomitant]
  5. ACETAMINOPHEN [Concomitant]

REACTIONS (6)
  - BLOOD ALKALINE PHOSPHATASE INCREASED [None]
  - CONDITION AGGRAVATED [None]
  - HAEMOGLOBIN DECREASED [None]
  - HAEMOLYSIS [None]
  - HYPERBILIRUBINAEMIA [None]
  - JAUNDICE [None]
